FAERS Safety Report 16544166 (Version 3)
Quarter: 2019Q3

REPORT INFORMATION
  Report Type: Spontaneous
  Country: US (occurrence: US)
  Receive Date: 20190709
  Receipt Date: 20190723
  Transmission Date: 20191004
  Serious: Yes (Other)
  Sender: FDA-Public Use
  Company Number: US-PFIZER INC-2019280085

PATIENT
  Age: 79 Year
  Sex: Female

DRUGS (2)
  1. IBRANCE [Suspect]
     Active Substance: PALBOCICLIB
     Indication: BREAST CANCER METASTATIC
     Dosage: 75 MG, CYCLIC (1X/DAY, 21 DAYS ON, 7 DAYS OFF)
     Route: 048
     Dates: start: 201801
  2. IBRANCE [Suspect]
     Active Substance: PALBOCICLIB
     Dosage: 100 MG, UNK

REACTIONS (4)
  - Dysphagia [Not Recovered/Not Resolved]
  - Alopecia [Recovering/Resolving]
  - Red blood cell count decreased [Unknown]
  - White blood cell count decreased [Unknown]
